FAERS Safety Report 9192739 (Version 1)
Quarter: 2013Q1

REPORT INFORMATION
  Report Type: Spontaneous
  Country: US (occurrence: None)
  Receive Date: 20130325
  Receipt Date: 20130325
  Transmission Date: 20140127
  Serious: Yes (Other)
  Sender: FDA-Public Use
  Company Number: UCM201302-000010

PATIENT
  Age: 87 Year
  Sex: Female

DRUGS (4)
  1. BISOPROLOL FUMARATE HYDROCHLOROTHIAZIDE [Suspect]
     Dosage: 1 TAB DAILY
  2. ENALAPRIL (ENALAPRIL) (ENALAPRIL) [Concomitant]
  3. AMLODIPINE BESYLATE (AMLODIPINE BESYLATE) (AMLODIPINE BESYLATE) [Concomitant]
  4. PRAVASTATIN (PRAVASTATIN) (PRAVASTATIN) [Concomitant]

REACTIONS (2)
  - Blood pressure systolic increased [None]
  - Joint swelling [None]
